FAERS Safety Report 18001544 (Version 3)
Quarter: 2021Q4

REPORT INFORMATION
  Report Type: Spontaneous
  Country: JP (occurrence: JP)
  Receive Date: 20200709
  Receipt Date: 20211027
  Transmission Date: 20220303
  Serious: Yes (Other)
  Sender: FDA-Public Use
  Company Number: JP-EISAI-202002353_LEN_P_1

PATIENT
  Age: 71 Year
  Sex: Male

DRUGS (11)
  1. LENVIMA [Suspect]
     Active Substance: LENVATINIB
     Indication: Thyroid cancer
     Route: 048
     Dates: start: 20191025, end: 2021
  2. LENVIMA [Suspect]
     Active Substance: LENVATINIB
     Dosage: DOSE REDUCED (DOSE AND FREQUENCY UNKNOWN)
     Route: 048
     Dates: start: 2021
  3. CLARITHROMYCIN [Concomitant]
     Active Substance: CLARITHROMYCIN
     Indication: Product used for unknown indication
     Dosage: DOSAGE AND FREQUENCY UNKNOWN
     Route: 065
  4. CANDESARTAN [Concomitant]
     Active Substance: CANDESARTAN
     Indication: Hypertension
     Dosage: DOSAGE AND FREQUENCY UNKNOWN
  5. AMLODIPINE [Concomitant]
     Active Substance: AMLODIPINE BESYLATE
     Indication: Hypertension
     Dosage: DOSAGE AND FREQUENCY UNKNOWN
  6. LOXOPROFEN [Concomitant]
     Active Substance: LOXOPROFEN
     Indication: Product used for unknown indication
     Dosage: DOSAGE AND FREQUENCY UNKNOWN
  7. LANSOPRAZOLE [Concomitant]
     Active Substance: LANSOPRAZOLE
     Indication: Product used for unknown indication
     Dosage: DOSAGE AND FREQUENCY UNKNOWN
  8. LYRICA [Concomitant]
     Active Substance: PREGABALIN
     Indication: Product used for unknown indication
     Dosage: DOSAGE AND FREQUENCY UNKNOWN
  9. ROSUVASTATIN [Concomitant]
     Active Substance: ROSUVASTATIN
     Indication: Hyperlipidaemia
     Dosage: DOSAGE AND FREQUENCY UNKNOWN
  10. LEVETIRACETAM [Concomitant]
     Active Substance: LEVETIRACETAM
     Indication: Epilepsy
     Dosage: DOSAGE AND FREQUENCY UNKNOWN
  11. ALFACALCIDOL [Concomitant]
     Active Substance: ALFACALCIDOL
     Indication: Product used for unknown indication
     Dosage: DOSAGE AND FREQUENCY UNKNOWN

REACTIONS (4)
  - Osteonecrosis of jaw [Recovering/Resolving]
  - Palmar-plantar erythrodysaesthesia syndrome [Recovering/Resolving]
  - Diarrhoea [Recovering/Resolving]
  - Pain in extremity [Unknown]

NARRATIVE: CASE EVENT DATE: 20190101
